FAERS Safety Report 4909841-5 (Version None)
Quarter: 2006Q1

REPORT INFORMATION
  Report Type: 
  Country: None (occurrence: None)
  Receive Date: 20060208
  Receipt Date: 20060131
  Transmission Date: 20060701
  Serious: Yes (Hospitalization)
  Sender: FDA-Public Use
  Company Number: 221629

PATIENT
  Age: 49 Year
  Sex: Female
  Weight: 111.1 kg

DRUGS (3)
  1. XOLAIR (OMALIZUMAB)PWDR + SOLVENT, INJECTION SOLN, 150 MG [Suspect]
     Indication: ASTHMA
     Dosage: 300 MG, Q2W, SUBCUTANEOUS
     Route: 058
  2. STEROIDS (UNK INGREDIENTS) (STEROID NOS) [Concomitant]
  3. TEQUIN [Concomitant]

REACTIONS (3)
  - ALDOLASE INCREASED [None]
  - MYALGIA [None]
  - MYOSITIS [None]
